FAERS Safety Report 6082873-2 (Version None)
Quarter: 2009Q1

REPORT INFORMATION
  Report Type: 
  Country: None (occurrence: None)
  Receive Date: 20090202
  Receipt Date: 20070105
  Transmission Date: 20090719
  Serious: Yes (Hospitalization)
  Sender: FDA-Public Use
  Company Number: 258397

PATIENT
  Weight: 181.4 kg

DRUGS (3)
  1. NOVOLOG [Suspect]
     Indication: DIABETES MELLITUS
     Dosage: SUBCUTANEOUS
     Route: 058
     Dates: start: 20061101, end: 20061101
  2. NOVOLOG [Suspect]
     Indication: DIABETES MELLITUS
     Dosage: SUBCUTANEOUS ; SUBCUTANEOUS
     Route: 058
     Dates: start: 20061101
  3. NOVOLOG [Suspect]
     Dosage: INTRAVENOUS
     Route: 042
     Dates: start: 20061101, end: 20061101

REACTIONS (1)
  - BLOOD GLUCOSE INCREASED [None]
